FAERS Safety Report 6158559-2 (Version None)
Quarter: 2009Q2

REPORT INFORMATION
  Report Type: 
  Country: None (occurrence: None)
  Receive Date: 20090417
  Receipt Date: 20090403
  Transmission Date: 20091009
  Serious: Yes (Hospitalization)
  Sender: FDA-Public Use
  Company Number: NO-CELGENEUS-122-C5013-09040201

PATIENT
  Sex: Male
  Weight: 66 kg

DRUGS (13)
  1. CC-5013 [Suspect]
     Indication: MULTIPLE MYELOMA
     Route: 048
     Dates: start: 20081206
  2. CC-5013 [Suspect]
     Route: 048
     Dates: start: 20090210, end: 20090225
  3. DEXAMETHASONE [Suspect]
     Indication: MULTIPLE MYELOMA
     Route: 048
     Dates: start: 20081206
  4. DEXAMETHASONE [Suspect]
     Route: 048
     Dates: start: 20090210, end: 20090225
  5. FUROSEMIDE [Concomitant]
     Route: 048
  6. DIGITOXIN TAB [Concomitant]
     Route: 048
  7. SEDATIVE [Concomitant]
     Indication: SEDATION
  8. OXYCONTIN [Concomitant]
     Indication: PAIN
     Route: 048
  9. PARACETAMOL [Concomitant]
     Indication: PAIN
     Route: 048
  10. DUPHALAC [Concomitant]
     Indication: PROPHYLAXIS
     Route: 048
  11. LAXOBERAL [Concomitant]
     Indication: PROPHYLAXIS
  12. NOVOMIX [Concomitant]
     Indication: DIABETES MELLITUS
     Route: 058
  13. INSULATARD [Concomitant]
     Indication: DIABETES MELLITUS
     Route: 058

REACTIONS (5)
  - AGRANULOCYTOSIS [None]
  - ANAEMIA [None]
  - FALL [None]
  - SKIN LACERATION [None]
  - THROMBOCYTOPENIA [None]
